FAERS Safety Report 5323233-9 (Version None)
Quarter: 2007Q2

REPORT INFORMATION
  Report Type: 
  Country: None (occurrence: None)
  Receive Date: 20070220
  Receipt Date: 20070116
  Transmission Date: 20071010
  Serious: No
  Sender: FDA-Public Use
  Company Number: WAES 0701USA02035

PATIENT
  Age: 76 Year
  Sex: Female

DRUGS (11)
  1. JANUVIA [Suspect]
     Indication: DIABETES MELLITUS
     Dosage: 100 MG/DAILY/PO
     Route: 048
     Dates: start: 20070112
  2. ADVAIR DISKUS 100/50 [Concomitant]
  3. BREVA [Concomitant]
  4. CALTRATE [Concomitant]
  5. COZAAR [Concomitant]
  6. CYTOTEC [Concomitant]
  7. NASAREL [Concomitant]
  8. DICLOFENAC [Concomitant]
  9. GLUCOSAMINE [Concomitant]
  10. LOVASTATIN [Concomitant]
  11. METFORMIN HCL [Concomitant]

REACTIONS (2)
  - EYE DISCHARGE [None]
  - RHINORRHOEA [None]
